FAERS Safety Report 9587233 (Version 1)
Quarter: 2013Q4

REPORT INFORMATION
  Report Type: Spontaneous
  Country: IN (occurrence: IN)
  Receive Date: 20131003
  Receipt Date: 20131003
  Transmission Date: 20140711
  Serious: Yes (Other)
  Sender: FDA-Public Use
  Company Number: IN-ACTAVIS-2013-17089

PATIENT
  Sex: Male

DRUGS (1)
  1. BETAMETHASONE (UNKNOWN) [Suspect]
     Indication: PROPHYLAXIS
     Dosage: UNK
     Route: 031

REACTIONS (3)
  - Cushing^s syndrome [Unknown]
  - Blood cortisol decreased [Unknown]
  - Overdose [Unknown]
